FAERS Safety Report 17112989 (Version 2)
Quarter: 2020Q2

REPORT INFORMATION
  Report Type: Report from Study
  Country: US (occurrence: US)
  Receive Date: 20191204
  Receipt Date: 20200423
  Transmission Date: 20200713
  Serious: Yes (Hospitalization)
  Sender: FDA-Public Use
  Company Number: US-ACTELION-A-US2019-198836

PATIENT
  Age: 71 Year
  Sex: Female
  Weight: 88.44 kg

DRUGS (3)
  1. UPTRAVI [Suspect]
     Active Substance: SELEXIPAG
     Dosage: 1000 MCG, QPM
     Route: 048
  2. UPTRAVI [Suspect]
     Active Substance: SELEXIPAG
     Indication: PULMONARY ARTERIAL HYPERTENSION
     Dosage: 1000 MCG, BID
     Route: 048
  3. WARFARIN [Concomitant]
     Active Substance: WARFARIN

REACTIONS (4)
  - Heart valve replacement [Unknown]
  - Coronary arterial stent insertion [Unknown]
  - Transcatheter aortic valve implantation [Unknown]
  - Cardiac operation [Unknown]

NARRATIVE: CASE EVENT DATE: 20191017
